FAERS Safety Report 5721592-6 (Version None)
Quarter: 2008Q2

REPORT INFORMATION
  Report Type: 
  Country: None (occurrence: None)
  Receive Date: 20080429
  Receipt Date: 20070305
  Transmission Date: 20081010
  Serious: Yes (Hospitalization)
  Sender: FDA-Public Use
  Company Number: US-ASTRAZENECA-2007UW04221

PATIENT
  Age: 73 Year
  Sex: Female

DRUGS (6)
  1. NEXIUM [Suspect]
     Indication: ERUCTATION
     Route: 048
     Dates: start: 20070101
  2. FOSAMAX [Concomitant]
  3. ZANTAC [Concomitant]
  4. EVISTA [Concomitant]
  5. VAGIFEM [Concomitant]
  6. LORAZEPAM [Concomitant]

REACTIONS (2)
  - DIARRHOEA [None]
  - HEART RATE INCREASED [None]
